FAERS Safety Report 20380277 (Version 3)
Quarter: 2022Q1

REPORT INFORMATION
  Report Type: Spontaneous
  Country: IT (occurrence: IT)
  Receive Date: 20220126
  Receipt Date: 20220218
  Transmission Date: 20220423
  Serious: Yes (Hospitalization, Disabling, Other)
  Sender: FDA-Public Use
  Company Number: IT-OTSUKA-2021_028828

PATIENT
  Age: 34 Year
  Sex: Female

DRUGS (5)
  1. ARIPIPRAZOLE [Suspect]
     Active Substance: ARIPIPRAZOLE
     Indication: Product used for unknown indication
     Dosage: 5 MG
     Route: 065
  2. ABILIFY MAINTENA [Suspect]
     Active Substance: ARIPIPRAZOLE
     Indication: Antipsychotic drug level
     Dosage: 400 MILLIGRAM
     Route: 030
     Dates: start: 20210522
  3. ABILIFY MAINTENA [Suspect]
     Active Substance: ARIPIPRAZOLE
     Indication: Bipolar disorder
  4. ABILIFY [Suspect]
     Active Substance: ARIPIPRAZOLE
     Indication: Antipsychotic drug level
     Dosage: 10 MILLIGRAM
     Route: 065
  5. LITHIUM CARBONATE [Suspect]
     Active Substance: LITHIUM CARBONATE
     Indication: Antipsychotic drug level
     Dosage: UNK (900 UNK)
     Route: 065

REACTIONS (13)
  - Obsessive-compulsive disorder [Unknown]
  - Syncope [Unknown]
  - Bradycardia [Unknown]
  - Loss of personal independence in daily activities [Unknown]
  - Epilepsy [Unknown]
  - Confusional state [Unknown]
  - Gait inability [Unknown]
  - Extrapyramidal disorder [Not Recovered/Not Resolved]
  - Dyskinesia [Unknown]
  - Drooling [Unknown]
  - Loss of consciousness [Unknown]
  - Disorientation [Unknown]
  - Product use in unapproved indication [Unknown]

NARRATIVE: CASE EVENT DATE: 20210522
